FAERS Safety Report 25984803 (Version 1)
Quarter: 2025Q4

REPORT INFORMATION
  Report Type: Spontaneous
  Country: MZ (occurrence: MZ)
  Receive Date: 20251031
  Receipt Date: 20251031
  Transmission Date: 20260117
  Serious: Yes (Death, Other)
  Sender: NOVARTIS
  Company Number: MZ-002147023-NVSC2025MZ166606

PATIENT
  Sex: Female

DRUGS (1)
  1. SCEMBLIX [Suspect]
     Active Substance: ASCIMINIB HYDROCHLORIDE
     Indication: Chronic myeloid leukaemia
     Dosage: 40 MG, BID (2 X 40MG TABLETS)
     Route: 065

REACTIONS (1)
  - Blast crisis in myelogenous leukaemia [Fatal]
